FAERS Safety Report 15595569 (Version 1)
Quarter: 2018Q4

REPORT INFORMATION
  Report Type: Spontaneous
  Country: US (occurrence: US)
  Receive Date: 20181107
  Receipt Date: 20181107
  Transmission Date: 20190205
  Serious: Yes (Other)
  Sender: FDA-Public Use
  Company Number: US-ASTELLAS-2018US046916

PATIENT
  Age: 7 Decade
  Sex: Male

DRUGS (1)
  1. LEXISCAN [Suspect]
     Active Substance: REGADENOSON
     Indication: PRODUCT USED FOR UNKNOWN INDICATION
     Dosage: UNK UNK, UNKNOWN FREQ.
     Route: 065

REACTIONS (6)
  - Seizure [Unknown]
  - Unresponsive to stimuli [Recovered/Resolved]
  - Urinary incontinence [Unknown]
  - Chills [Unknown]
  - Anal incontinence [Unknown]
  - Blood pressure decreased [Unknown]
